FAERS Safety Report 16323776 (Version 2)
Quarter: 2019Q2

REPORT INFORMATION
  Report Type: Report from Study
  Country: DE (occurrence: DE)
  Receive Date: 20190517
  Receipt Date: 20190607
  Transmission Date: 20190711
  Serious: No
  Sender: FDA-Public Use
  Company Number: DE-AMGEN-DEUSL2019075651

PATIENT
  Age: 40 Year
  Sex: Male

DRUGS (1)
  1. AMGEVITA [Suspect]
     Active Substance: ADALIMUMAB
     Indication: COLITIS ULCERATIVE
     Dosage: 40 MILLIGRAM, Q2WK
     Route: 065

REACTIONS (5)
  - Head discomfort [Unknown]
  - Dizziness [Unknown]
  - Dyspnoea [Unknown]
  - Skin exfoliation [Unknown]
  - Headache [Unknown]

NARRATIVE: CASE EVENT DATE: 2019
